FAERS Safety Report 6486544-X (Version None)
Quarter: 2009Q4

REPORT INFORMATION
  Report Type: 
  Country: None (occurrence: None)
  Receive Date: 20091209
  Receipt Date: 20091209
  Transmission Date: 20100525
  Serious: Yes (Hospitalization)
  Sender: FDA-Public Use
  Company Number: None

PATIENT
  Age: 73 Year
  Sex: Female
  Weight: 57.5 kg

DRUGS (6)
  1. ASPIRIN [Suspect]
     Dosage: 81MG DAILY PO CHRONIC
     Route: 048
  2. METFORMIN HCL [Concomitant]
  3. ZETIA [Concomitant]
  4. AMARYL [Concomitant]
  5. AMLODIPINE BESYLATE AND BENAZEPRIL HCL [Concomitant]
  6. LANTUS [Concomitant]

REACTIONS (2)
  - GASTRITIS [None]
  - HAEMATEMESIS [None]
